FAERS Safety Report 19662071 (Version 1)
Quarter: 2021Q3

REPORT INFORMATION
  Report Type: Spontaneous
  Country: US (occurrence: US)
  Receive Date: 20210805
  Receipt Date: 20210805
  Transmission Date: 20211014
  Serious: Yes (Hospitalization)
  Sender: FDA-Public Use
  Company Number: US-AMNEAL PHARMACEUTICALS-2021-AMRX-03043

PATIENT
  Age: 28 Year
  Sex: Female
  Weight: 117.6 kg

DRUGS (50)
  1. DEXAMETHASONE SODIUM PHOSPHATE. [Suspect]
     Active Substance: DEXAMETHASONE SODIUM PHOSPHATE
     Dosage: 4 DOSAGE FORM
     Route: 048
     Dates: start: 20201230, end: 20210101
  2. ETOPOSIDE. [Suspect]
     Active Substance: ETOPOSIDE
     Indication: B-CELL LYMPHOMA
     Dosage: UNK
     Route: 042
     Dates: start: 20191122, end: 20191126
  3. ETOPOSIDE. [Suspect]
     Active Substance: ETOPOSIDE
     Dosage: UNK
     Route: 042
     Dates: start: 20200106
  4. MELPHALAN. [Suspect]
     Active Substance: MELPHALAN
     Indication: B-CELL LYMPHOMA
     Dosage: 140 MILLIGRAM/SQ. METER, QD
     Route: 042
     Dates: start: 20201212, end: 20201217
  5. RITUXIMAB. [Suspect]
     Active Substance: RITUXIMAB
     Dosage: 375 MILLIGRAM/SQ. METER, ONCE
     Route: 065
     Dates: start: 20201022
  6. CIPROFLOXACINE [CIPROFLOXACIN] [Concomitant]
     Active Substance: CIPROFLOXACIN
     Indication: ANTIBIOTIC PROPHYLAXIS
     Dosage: 2 DOSAGE FORM, QD
     Route: 048
     Dates: start: 20201211, end: 20201225
  7. PROCHLORPERAZINE. [Concomitant]
     Active Substance: PROCHLORPERAZINE
     Indication: NAUSEA
     Dosage: 32 MILLIGRAM, PRN
     Route: 048
     Dates: start: 20201211
  8. ETOPOSIDE. [Suspect]
     Active Substance: ETOPOSIDE
     Dosage: UNK
     Route: 042
     Dates: start: 20191216, end: 20191220
  9. ETOPOSIDE. [Suspect]
     Active Substance: ETOPOSIDE
     Dosage: UNK
     Route: 042
     Dates: start: 20200127, end: 202003
  10. RITUXIMAB. [Suspect]
     Active Substance: RITUXIMAB
     Dosage: 375 MILLIGRAM/SQ. METER, ONCE
     Route: 065
     Dates: start: 20200928
  11. DOCUSATE SODIUM. [Concomitant]
     Active Substance: DOCUSATE SODIUM
     Indication: CONSTIPATION
     Dosage: 300 MILLIGRAM, EVERY 8HR
     Route: 048
     Dates: start: 20201109
  12. ONDANSETRON [Concomitant]
     Active Substance: ONDANSETRON
     Indication: NAUSEA
     Dosage: 24 MILLIGRAM, PRN
     Route: 048
     Dates: start: 20201211
  13. DEXAMETHASONE SODIUM PHOSPHATE. [Suspect]
     Active Substance: DEXAMETHASONE SODIUM PHOSPHATE
     Indication: NAUSEA
     Dosage: UNK
     Route: 065
     Dates: start: 20201019
  14. CYTARABINE. [Suspect]
     Active Substance: CYTARABINE
     Dosage: 400 MILLIGRAM/SQ. METER, FOR 4 DAYS ON 5, 4 , 3, 2
     Route: 042
     Dates: start: 20201212, end: 20201217
  15. RITUXIMAB. [Suspect]
     Active Substance: RITUXIMAB
     Dosage: UNK
     Route: 065
     Dates: start: 20191216, end: 20191220
  16. RITUXIMAB. [Suspect]
     Active Substance: RITUXIMAB
     Dosage: UNK
     Route: 065
     Dates: start: 20200127
  17. PROCHLORPERAZINE. [Concomitant]
     Active Substance: PROCHLORPERAZINE
     Dosage: 40 MILLIGRAM AS NEEDED
     Route: 048
  18. DEXAMETHASONE SODIUM PHOSPHATE. [Suspect]
     Active Substance: DEXAMETHASONE SODIUM PHOSPHATE
     Dosage: 4 MILLIGRAM, 2 /DAY
     Route: 048
     Dates: start: 20201211, end: 20201217
  19. ETOPOSIDE. [Suspect]
     Active Substance: ETOPOSIDE
     Dosage: 200 TO 300 MG/M2, DAILY FOR 4 DAYS ON DAYS 2,3,4,5
     Route: 042
     Dates: start: 20201212, end: 20201217
  20. CYTARABINE. [Suspect]
     Active Substance: CYTARABINE
     Dosage: 4000 MILLIGRAM/SQ. METER, EVERY 12HR
     Route: 042
     Dates: start: 20201110, end: 20201112
  21. SENNA [SENNOSIDE A+B] [Concomitant]
     Active Substance: SENNOSIDES A AND B
     Indication: CONSTIPATION
     Dosage: 17.2 MILLIGRAM, AS NEEDED
     Route: 048
     Dates: start: 20200930
  22. LIDOCAINE. [Concomitant]
     Active Substance: LIDOCAINE
     Indication: OESOPHAGITIS
     Dosage: UNK
     Route: 065
  23. DEXAMETHASONE SODIUM PHOSPHATE. [Suspect]
     Active Substance: DEXAMETHASONE SODIUM PHOSPHATE
     Indication: B-CELL LYMPHOMA
     Dosage: UNK
     Route: 065
     Dates: start: 20200928
  24. DEXAMETHASONE SODIUM PHOSPHATE. [Suspect]
     Active Substance: DEXAMETHASONE SODIUM PHOSPHATE
     Dosage: UNK
     Route: 048
     Dates: start: 20201227
  25. DEXAMETHASONE SODIUM PHOSPHATE. [Suspect]
     Active Substance: DEXAMETHASONE SODIUM PHOSPHATE
     Dosage: 3 DOSAGE FORM, 1 /DAY
     Route: 048
     Dates: start: 20210102, end: 20210104
  26. DEXAMETHASONE SODIUM PHOSPHATE. [Suspect]
     Active Substance: DEXAMETHASONE SODIUM PHOSPHATE
     Dosage: 2 DOSAGE FORM, 1 /DAY
     Route: 048
     Dates: start: 20210105, end: 20210107
  27. DEXAMETHASONE SODIUM PHOSPHATE. [Suspect]
     Active Substance: DEXAMETHASONE SODIUM PHOSPHATE
     Dosage: 1 DOSAGE FORM, 1 /DAY
     Route: 048
     Dates: start: 20210108, end: 20210110
  28. RITUXIMAB. [Suspect]
     Active Substance: RITUXIMAB
     Indication: B-CELL LYMPHOMA
     Dosage: UNK
     Route: 065
     Dates: start: 20191122, end: 20191126
  29. CISPLATIN. [Suspect]
     Active Substance: CISPLATIN
     Dosage: 100 MILLIGRAM/SQ. METER, 1 /DAY
     Route: 042
     Dates: start: 20201109, end: 20201112
  30. ACYCLOVIR [ACICLOVIR SODIUM] [Concomitant]
     Active Substance: ACYCLOVIR
     Indication: ANTIVIRAL PROPHYLAXIS
     Dosage: 800 MILLIGRAM, EVERY 12HR
     Route: 048
     Dates: start: 20201211
  31. CIPROFLOXACINE [CIPROFLOXACIN] [Concomitant]
     Active Substance: CIPROFLOXACIN
     Indication: BACTERAEMIA
     Dosage: 1000 MILLIGRAM, EVERY 12HR
     Route: 048
     Dates: end: 20210108
  32. FLUCONAZOLE. [Concomitant]
     Active Substance: FLUCONAZOLE
     Indication: ANTIFUNGAL TREATMENT
     Dosage: 400 MILLIGRAM, 2 /DAY
     Route: 048
     Dates: start: 20201211, end: 20201225
  33. LORAZEPAM. [Concomitant]
     Active Substance: LORAZEPAM
     Indication: NAUSEA
     Dosage: 1.5 MILLIGRAM, 3 /DAY
     Route: 048
     Dates: start: 20201211
  34. ERGOCALCIFEROL. [Concomitant]
     Active Substance: ERGOCALCIFEROL
     Indication: SUPPLEMENTATION THERAPY
     Dosage: 1.25 MILLIGRAM, EVERY 7 DAYS X 60 DAYS
     Route: 048
     Dates: start: 20201212
  35. SUCRALFATE. [Concomitant]
     Active Substance: SUCRALFATE
     Indication: PROPHYLAXIS
     Dosage: 40 MILLILITER, 4 /DAY
     Route: 048
     Dates: start: 20201223
  36. CARMUSTINE. [Suspect]
     Active Substance: CARMUSTINE
     Indication: B-CELL LYMPHOMA
     Dosage: 300 MILLIGRAM/SQ. METER, ONCE ON DAY 6
     Route: 042
     Dates: start: 20201212, end: 20201217
  37. RITUXIMAB. [Suspect]
     Active Substance: RITUXIMAB
     Dosage: 375 MILLIGRAM/SQ. METER, ONCE
     Route: 065
     Dates: start: 20201112
  38. CISPLATIN. [Suspect]
     Active Substance: CISPLATIN
     Dosage: 100 MILLIGRAM/SQ. METER, 1 /DAY
     Route: 042
     Dates: start: 20201019
  39. ACYCLOVIR [ACICLOVIR SODIUM] [Concomitant]
     Active Substance: ACYCLOVIR
     Dosage: 800 MILLIGRAM, EVERY 12HR
     Route: 048
     Dates: end: 20210108
  40. FLAGYL [Concomitant]
     Active Substance: METRONIDAZOLE\METRONIDAZOLE HYDROCHLORIDE
     Indication: ANTIBIOTIC THERAPY
     Dosage: 500 MILLIGRAM, EVERY 8HR
     Route: 048
     Dates: end: 20210108
  41. DEXAMETHASONE SODIUM PHOSPHATE. [Suspect]
     Active Substance: DEXAMETHASONE SODIUM PHOSPHATE
     Indication: ENGRAFTMENT SYNDROME
     Dosage: UNK
     Route: 065
     Dates: start: 20201109, end: 20201112
  42. CYTARABINE. [Suspect]
     Active Substance: CYTARABINE
     Indication: B-CELL LYMPHOMA
     Dosage: 4000 MILLIGRAM/SQ. METER, EVERY 12HR
     Route: 042
     Dates: start: 20200929
  43. CISPLATIN. [Suspect]
     Active Substance: CISPLATIN
     Indication: B-CELL LYMPHOMA
     Dosage: 100 MILLIGRAM/SQ. METER, 1 /DAY
     Route: 042
     Dates: start: 20200928
  44. ELINEST [Concomitant]
     Active Substance: ETHINYL ESTRADIOL\NORGESTREL
     Indication: MENSTRUAL DISORDER
     Dosage: 0.3/30 MCG EVERY DAY
     Route: 048
     Dates: start: 20201221
  45. LIDOCAINE. [Concomitant]
     Active Substance: LIDOCAINE
     Indication: STOMATITIS
     Dosage: 20 MILLILITER, 4 /DAY
     Route: 048
     Dates: start: 20201223
  46. CYTARABINE. [Suspect]
     Active Substance: CYTARABINE
     Dosage: 4000 MILLIGRAM/SQ. METER, EVERY 12HR
     Route: 042
     Dates: start: 20201020
  47. RITUXIMAB. [Suspect]
     Active Substance: RITUXIMAB
     Dosage: UNK
     Route: 065
     Dates: start: 20200106
  48. SULFAMETHOXAZOLE;TRIMETHOPRIM [Concomitant]
     Active Substance: SULFAMETHOXAZOLE\TRIMETHOPRIM
     Indication: PROPHYLAXIS
     Dosage: 800/160 MG,  3 /WEEK
     Route: 048
     Dates: start: 20201109, end: 20201208
  49. ONDANSETRON [Concomitant]
     Active Substance: ONDANSETRON
     Indication: VOMITING
  50. FLAGYL [Concomitant]
     Active Substance: METRONIDAZOLE\METRONIDAZOLE HYDROCHLORIDE
     Indication: BACTERAEMIA

REACTIONS (4)
  - Postural orthostatic tachycardia syndrome [Recovered/Resolved]
  - Bacteraemia [Recovered/Resolved]
  - Oesophagitis [Recovered/Resolved]
  - Engraftment syndrome [Recovered/Resolved]

NARRATIVE: CASE EVENT DATE: 20201223
